FAERS Safety Report 6985790-6 (Version None)
Quarter: 2010Q3

REPORT INFORMATION
  Report Type: 
  Country: None (occurrence: None)
  Receive Date: 20100915
  Receipt Date: 20100306
  Transmission Date: 20110219
  Serious: No
  Sender: FDA-Public Use
  Company Number: US-BAYER-201019910BCC

PATIENT
  Age: 59 Year
  Sex: Male

DRUGS (4)
  1. ALEVE [Suspect]
     Indication: NECK PAIN
     Dosage: TOTAL DAILY DOSE: 660 MG  UNIT DOSE: 220 MG
     Route: 048
     Dates: start: 20100306
  2. MELOXICAM [Concomitant]
     Route: 065
  3. PERCOCET [Concomitant]
     Route: 065
  4. PREVACID TYPE MEDICATION [Concomitant]
     Route: 065

REACTIONS (1)
  - NO ADVERSE EVENT [None]
